FAERS Safety Report 18381589 (Version 1)
Quarter: 2020Q4

REPORT INFORMATION
  Report Type: Spontaneous
  Country: FR (occurrence: FR)
  Receive Date: 20201014
  Receipt Date: 20201014
  Transmission Date: 20210114
  Serious: Yes (Hospitalization)
  Sender: FDA-Public Use
  Company Number: FR-JNJFOC-20201009684

PATIENT
  Age: 63 Year
  Sex: Male

DRUGS (6)
  1. GLICLAZIDE [Concomitant]
     Active Substance: GLICLAZIDE
     Indication: TYPE 2 DIABETES MELLITUS
  2. METFORMIN [Concomitant]
     Active Substance: METFORMIN HYDROCHLORIDE
     Indication: TYPE 2 DIABETES MELLITUS
  3. TERCIAN                            /00759301/ [Suspect]
     Active Substance: CYAMEMAZINE
     Indication: SCHIZOPHRENIA
     Dosage: 4%
     Route: 048
     Dates: start: 1998, end: 2018
  4. VICTOZA [Concomitant]
     Active Substance: LIRAGLUTIDE
     Indication: TYPE 2 DIABETES MELLITUS
  5. L-THYROXINE                        /00068001/ [Concomitant]
     Active Substance: LEVOTHYROXINE
  6. HALDOL DECANOAS [Suspect]
     Active Substance: HALOPERIDOL DECANOATE
     Indication: SCHIZOPHRENIA
     Route: 030
     Dates: start: 1998, end: 2018

REACTIONS (3)
  - Mental disorder [Unknown]
  - Cardiac disorder [Unknown]
  - Cerebrovascular accident [Unknown]
